FAERS Safety Report 18887116 (Version 1)
Quarter: 2021Q1

REPORT INFORMATION
  Report Type: Spontaneous
  Country: US (occurrence: US)
  Receive Date: 20210212
  Receipt Date: 20210212
  Transmission Date: 20210420
  Serious: Yes (Disabling)
  Sender: FDA-Public Use
  Company Number: US-SA-2021SA041371

PATIENT
  Sex: Female

DRUGS (1)
  1. AUBAGIO [Suspect]
     Active Substance: TERIFLUNOMIDE
     Indication: MULTIPLE SCLEROSIS
     Dosage: 14 MG, QD
     Route: 048

REACTIONS (8)
  - Post-traumatic stress disorder [Unknown]
  - Restless legs syndrome [Unknown]
  - Diarrhoea [Unknown]
  - Arthralgia [Unknown]
  - Alopecia [Unknown]
  - Muscle spasms [Unknown]
  - Abdominal pain [Unknown]
  - Walking aid user [Unknown]
